FAERS Safety Report 7487324-9 (Version None)
Quarter: 2011Q2

REPORT INFORMATION
  Report Type: 
  Country: None (occurrence: None)
  Receive Date: 20110518
  Receipt Date: 20110504
  Transmission Date: 20111010
  Serious: Yes (Hospitalization, Other)
  Sender: FDA-Public Use
  Company Number: US-ELI_LILLY_AND_COMPANY-US201105001628

PATIENT
  Sex: Female

DRUGS (13)
  1. CYANOCOBALAMIN [Concomitant]
     Dosage: 1000 UG, MONTHLY (1/M)
  2. DIGOXIN [Concomitant]
     Dosage: 0.125 MG, QD
  3. NITROGLYCERIN [Concomitant]
     Dosage: 0.4 MG, UNK
     Route: 060
  4. MIRALAX [Concomitant]
     Dosage: 17 G, QD
  5. VITAMIN C [Concomitant]
     Dosage: 500 MG, BID
  6. MULTI-VITAMIN [Concomitant]
     Dosage: UNK, QD
  7. SIMVASTATIN [Concomitant]
     Dosage: 20 MG, UNK
  8. ZOFRAN [Concomitant]
     Indication: NAUSEA
     Dosage: 4 MG, EVERY 4 HRS
  9. OMEPRAZOLE [Concomitant]
     Dosage: UNK, QD
  10. FUROSEMIDE [Concomitant]
     Dosage: 20 MG, BID
  11. FORTEO [Suspect]
     Indication: OSTEOPOROSIS
     Dosage: 20 UG, QD
  12. SOTALOL HCL [Concomitant]
     Dosage: 40 MG, BID
  13. VITAMIN D [Concomitant]
     Dosage: 1000 U, QD

REACTIONS (5)
  - HIP FRACTURE [None]
  - FEMUR FRACTURE [None]
  - FALL [None]
  - GAIT DISTURBANCE [None]
  - RENAL FAILURE CHRONIC [None]
